FAERS Safety Report 9227936 (Version 3)
Quarter: 2013Q2

REPORT INFORMATION
  Report Type: Spontaneous
  Country: US (occurrence: US)
  Receive Date: 20130412
  Receipt Date: 20130521
  Transmission Date: 20140414
  Serious: No
  Sender: FDA-Public Use
  Company Number: US-JNJFOC-20130400304

PATIENT
  Age: 64 Year
  Sex: Female
  Weight: 72.58 kg

DRUGS (10)
  1. DURAGESIC [Suspect]
     Indication: BACK PAIN
     Route: 062
     Dates: start: 20130321
  2. DURAGESIC [Suspect]
     Indication: BACK PAIN
     Route: 062
     Dates: start: 20130313, end: 20130321
  3. DURAGESIC [Suspect]
     Indication: BACK PAIN
     Route: 062
     Dates: start: 200705, end: 201303
  4. DURAGESIC [Suspect]
     Indication: BACK PAIN
     Route: 062
     Dates: start: 200506, end: 200705
  5. PROVIGIL [Concomitant]
     Route: 065
     Dates: start: 20130219, end: 20130317
  6. BUPROPION [Concomitant]
     Indication: DEPRESSION
     Route: 065
     Dates: start: 20130207, end: 20130307
  7. ESCITALOPRAM [Concomitant]
     Indication: DEPRESSION
     Route: 065
     Dates: start: 20130207, end: 20130307
  8. FUROSEMIDE [Concomitant]
     Indication: FLUID RETENTION
     Route: 065
     Dates: start: 20130221, end: 20130319
  9. NORCO [Concomitant]
     Indication: PAIN
     Dosage: 10/325
     Route: 065
     Dates: start: 20130312, end: 20130412
  10. POTASSIUM CHLORIDE [Concomitant]
     Route: 065
     Dates: start: 20130320, end: 20130420

REACTIONS (6)
  - Drug withdrawal syndrome [Recovered/Resolved]
  - Abnormal loss of weight [Not Recovered/Not Resolved]
  - Drug ineffective [Recovered/Resolved]
  - Product quality issue [Unknown]
  - Treatment noncompliance [Unknown]
  - Gastrointestinal disorder [Unknown]
